FAERS Safety Report 6926030-3 (Version None)
Quarter: 2010Q3

REPORT INFORMATION
  Report Type: 
  Country: None (occurrence: None)
  Receive Date: 20100810
  Receipt Date: 20100727
  Transmission Date: 20110219
  Serious: Yes (Death)
  Sender: FDA-Public Use
  Company Number: IDA-00390

PATIENT
  Age: 0 Year

DRUGS (2)
  1. PROPRANOLOL [Suspect]
     Indication: SUPRAVENTRICULAR TACHYCARDIA
  2. DIGITALIS (DIGITALIS PURPUREA) [Suspect]
     Indication: ARRHYTHMIA

REACTIONS (5)
  - DISSEMINATED INTRAVASCULAR COAGULATION [None]
  - DRUG INEFFECTIVE [None]
  - HAEMODYNAMIC INSTABILITY [None]
  - NEONATAL RESPIRATORY FAILURE [None]
  - OEDEMA [None]
